FAERS Safety Report 9294185 (Version 4)
Quarter: 2013Q4

REPORT INFORMATION
  Report Type: Report from Study
  Country: CA (occurrence: CA)
  Receive Date: 20130517
  Receipt Date: 20131128
  Transmission Date: 20140711
  Serious: Yes (Other)
  Sender: FDA-Public Use
  Company Number: CA-ROCHE-1224850

PATIENT
  Age: 52 Year
  Sex: Female
  Weight: 81.2 kg

DRUGS (8)
  1. RITUXAN [Suspect]
     Indication: NEUROMYELITIS OPTICA
     Dosage: DAY 1, 15
     Route: 042
     Dates: start: 20111215
  2. RITUXAN [Suspect]
     Indication: OFF LABEL USE
  3. SYNTHROID [Concomitant]
     Route: 065
  4. DETROL [Concomitant]
  5. SENOKOT [Concomitant]
  6. NYSTATIN [Concomitant]
  7. ACYCLOVIR [Concomitant]
     Route: 065
     Dates: start: 201110
  8. BACLOFEN [Concomitant]
     Route: 065
     Dates: start: 201110

REACTIONS (4)
  - Spinal compression fracture [Not Recovered/Not Resolved]
  - Gastrooesophageal reflux disease [Not Recovered/Not Resolved]
  - Weight increased [Not Recovered/Not Resolved]
  - Off label use [Unknown]
